FAERS Safety Report 6133996-0 (Version None)
Quarter: 2009Q1

REPORT INFORMATION
  Report Type: 
  Country: None (occurrence: None)
  Receive Date: 20090217
  Receipt Date: 20080222
  Transmission Date: 20090719
  Serious: No
  Sender: FDA-Public Use
  Company Number: AEUSA200800044

PATIENT
  Age: 71 Year
  Sex: Female
  Weight: 84.5 kg

DRUGS (6)
  1. PROLASTIN [Suspect]
     Indication: ALPHA-1 ANTI-TRYPSIN DEFICIENCY
     Dosage: 200 ML; 1X; IV
     Route: 042
     Dates: start: 20080214, end: 20080221
  2. PROTONIX /01263201/ [Concomitant]
  3. AVELOX [Concomitant]
  4. MAXAIR [Concomitant]
  5. SYNTHROID [Concomitant]
  6. LEXAPRO [Concomitant]

REACTIONS (1)
  - PALPITATIONS [None]
